FAERS Safety Report 7553977-X (Version None)
Quarter: 2011Q2

REPORT INFORMATION
  Report Type: 
  Country: None (occurrence: None)
  Receive Date: 20110617
  Receipt Date: 20110609
  Transmission Date: 20111010
  Serious: Yes (Hospitalization)
  Sender: FDA-Public Use
  Company Number: FR-B.I. PHARMACEUTICALS,INC./RIDGEFIELD-2011-FF-00572FF

PATIENT
  Age: 67 Year
  Sex: Female

DRUGS (1)
  1. PRAMIPEXOLE DIHYDROCHLORIDE [Suspect]
     Indication: PARKINSON'S DISEASE
     Dosage: 1.57 MG
     Route: 048

REACTIONS (2)
  - DELIRIUM [None]
  - CONFUSIONAL STATE [None]
